FAERS Safety Report 10729892 (Version 3)
Quarter: 2016Q1

REPORT INFORMATION
  Report Type: Spontaneous
  Country: US (occurrence: US)
  Receive Date: 20150122
  Receipt Date: 20160225
  Transmission Date: 20160525
  Serious: Yes (Hospitalization, Other)
  Sender: FDA-Public Use
  Company Number: US-009507513-1501USA008008

PATIENT
  Sex: Female

DRUGS (5)
  1. ACTONEL [Suspect]
     Active Substance: RISEDRONATE SODIUM
     Indication: PROPHYLAXIS
     Dosage: 5 MG, QD
     Route: 048
     Dates: start: 20010525, end: 20020418
  2. BONIVA [Suspect]
     Active Substance: IBANDRONATE SODIUM
     Indication: OSTEOPENIA
     Dosage: 150 MG, Q MONTH
     Route: 048
     Dates: start: 20091002, end: 20110211
  3. FOSAMAX [Suspect]
     Active Substance: ALENDRONATE SODIUM
     Indication: OSTEOPENIA
     Dosage: 70 MG, QW
     Route: 048
     Dates: start: 20020516, end: 20071204
  4. OS-CAL (CALCIUM (UNSPECIFIED) (+) VITAMIN D (UNSPECIFIED)) [Concomitant]
     Dosage: 500+ D 1250 MG DAILY
     Route: 065
     Dates: start: 1995, end: 2010
  5. PREMARIN [Concomitant]
     Active Substance: ESTROGENS, CONJUGATED
     Indication: HOT FLUSH
     Dosage: UNK, UNKNOWN
     Route: 048
     Dates: start: 20011231, end: 20090611

REACTIONS (12)
  - Internal haemorrhage [Unknown]
  - Femur fracture [Unknown]
  - Vitamin D deficiency [Unknown]
  - Sleep disorder [Unknown]
  - Nervousness [Unknown]
  - Back pain [Unknown]
  - Bone graft [Unknown]
  - Calcium deficiency [Unknown]
  - Fracture nonunion [Unknown]
  - Device failure [Unknown]
  - Femur fracture [Unknown]
  - Pain [Unknown]

NARRATIVE: CASE EVENT DATE: 20020617
